FAERS Safety Report 26172260 (Version 1)
Quarter: 2025Q4

REPORT INFORMATION
  Report Type: Spontaneous
  Country: US (occurrence: US)
  Receive Date: 20251218
  Receipt Date: 20251218
  Transmission Date: 20260117
  Serious: Yes (Other)
  Sender: JOHNSON AND JOHNSON
  Company Number: US-JNJFOC-20251213344

PATIENT
  Age: 63 Year
  Sex: Male

DRUGS (5)
  1. HALDOL [Suspect]
     Active Substance: HALOPERIDOL
     Indication: Schizophrenia
     Route: 048
  2. HALDOL [Suspect]
     Active Substance: HALOPERIDOL
     Route: 030
  3. HALDOL [Suspect]
     Active Substance: HALOPERIDOL
     Route: 030
  4. INGREZZA [Suspect]
     Active Substance: VALBENAZINE DITOSYLATE
     Indication: Tardive dyskinesia
     Route: 048
     Dates: start: 20250910, end: 20250926
  5. BUPROPION [Concomitant]
     Active Substance: BUPROPION
     Indication: Product used for unknown indication

REACTIONS (2)
  - Hallucination [Not Recovered/Not Resolved]
  - Tardive dyskinesia [Unknown]
